FAERS Safety Report 4407119-X (Version None)
Quarter: 2004Q3

REPORT INFORMATION
  Report Type: 
  Country: None (occurrence: None)
  Receive Date: 20040721
  Receipt Date: 20040706
  Transmission Date: 20050211
  Serious: Yes (Hospitalization)
  Sender: FDA-Public Use
  Company Number: 2004-0007241

PATIENT
  Age: 42 Year
  Sex: Male

DRUGS (7)
  1. VIREAD [Suspect]
     Indication: HIV INFECTION
  2. ATAZANAVIR (ATAZANAVIR) [Concomitant]
  3. RITONAVIR (RITONAVIR) [Concomitant]
  4. LEVOFLOXACIN [Concomitant]
  5. PSEUDOEPHEDRINE HCL [Concomitant]
  6. GUAIFENESIN [Concomitant]
  7. LORATADINE [Concomitant]

REACTIONS (3)
  - ATRIOVENTRICULAR BLOCK COMPLETE [None]
  - CONDUCTION DISORDER [None]
  - SINUS ARREST [None]
